FAERS Safety Report 23665960 (Version 1)
Quarter: 2024Q1

REPORT INFORMATION
  Report Type: Spontaneous
  Country: US (occurrence: US)
  Receive Date: 20240323
  Receipt Date: 20240323
  Transmission Date: 20240410
  Serious: Yes (Other)
  Sender: FDA-Public Use
  Company Number: US-MALLINCKRODT-MNK202401949

PATIENT

DRUGS (1)
  1. CORTICOTROPIN [Suspect]
     Active Substance: CORTICOTROPIN
     Indication: Multiple sclerosis relapse
     Dosage: UNKNOWN
     Dates: start: 20221117

REACTIONS (2)
  - COVID-19 [Unknown]
  - Dizziness [Unknown]
